FAERS Safety Report 10689158 (Version 2)
Quarter: 2015Q1

REPORT INFORMATION
  Report Type: Spontaneous
  Country: TW (occurrence: TW)
  Receive Date: 20150105
  Receipt Date: 20150111
  Transmission Date: 20150720
  Serious: Yes (Death, Hospitalization)
  Sender: FDA-Public Use
  Company Number: TW-AMGEN-TWNSP2014102237

PATIENT
  Age: 91 Year
  Sex: Male

DRUGS (3)
  1. PLAQUENIL [Concomitant]
     Active Substance: HYDROXYCHLOROQUINE SULFATE
     Indication: RHEUMATOID ARTHRITIS
     Dosage: 200 MG, 2X/DAY
     Route: 048
  2. ENBREL [Suspect]
     Active Substance: ETANERCEPT
     Indication: RHEUMATOID ARTHRITIS
     Dosage: 25 MG, 2X/WEEK
     Route: 058
     Dates: start: 20130409
  3. PREDNISOLON                        /00016201/ [Concomitant]
     Active Substance: PREDNISOLONE
     Indication: RHEUMATOID ARTHRITIS
     Dosage: 0.5 MG, 1X/DAY
     Route: 048

REACTIONS (2)
  - Renal failure [Fatal]
  - Cardiac failure [Fatal]

NARRATIVE: CASE EVENT DATE: 20141216
